FAERS Safety Report 16857381 (Version 1)
Quarter: 2019Q3

REPORT INFORMATION
  Report Type: Spontaneous
  Country: ID (occurrence: ID)
  Receive Date: 20190926
  Receipt Date: 20190926
  Transmission Date: 20191005
  Serious: Yes (Other)
  Sender: FDA-Public Use
  Company Number: PHHY2019ID220809

PATIENT
  Age: 38 Year
  Sex: Female

DRUGS (2)
  1. METHYLPREDNISOLONE. [Suspect]
     Active Substance: METHYLPREDNISOLONE
     Indication: PAPULE
     Dosage: 16 MG, TID
     Route: 048
  2. METHYLPREDNISOLONE. [Suspect]
     Active Substance: METHYLPREDNISOLONE
     Indication: PRURITUS

REACTIONS (4)
  - Infection [Recovering/Resolving]
  - Acarodermatitis [Recovering/Resolving]
  - Immune system disorder [Unknown]
  - Incorrect product administration duration [Recovering/Resolving]
